FAERS Safety Report 6165578-9 (Version None)
Quarter: 2009Q2

REPORT INFORMATION
  Report Type: 
  Country: None (occurrence: None)
  Receive Date: 20090423
  Receipt Date: 20090414
  Transmission Date: 20091009
  Serious: Yes (Life-Threatening, Hospitalization)
  Sender: FDA-Public Use
  Company Number: ES-JNJFOC-20090400891

PATIENT
  Age: 49 Year
  Sex: Female
  Weight: 45 kg

DRUGS (4)
  1. JURNISTA [Suspect]
     Route: 048
  2. JURNISTA [Suspect]
     Indication: PAIN
     Route: 048
  3. DURAGESIC-100 [Suspect]
     Route: 062
  4. DURAGESIC-100 [Suspect]
     Indication: PAIN
     Route: 062

REACTIONS (5)
  - DISORIENTATION [None]
  - DYSKINESIA [None]
  - MUSCLE SPASMS [None]
  - MYOCLONUS [None]
  - WITHDRAWAL SYNDROME [None]
